FAERS Safety Report 6655353-0 (Version None)
Quarter: 2010Q1

REPORT INFORMATION
  Report Type: 
  Country: None (occurrence: None)
  Receive Date: 20100329
  Receipt Date: 20100318
  Transmission Date: 20100710
  Serious: Yes (Other)
  Sender: FDA-Public Use
  Company Number: PHHY2010CA16429

PATIENT
  Sex: Male

DRUGS (7)
  1. CLOZARIL [Suspect]
     Indication: SCHIZOPHRENIA
     Dosage: 250 MG, UNK
     Route: 048
     Dates: start: 20091125, end: 20100308
  2. LITHIUM [Concomitant]
     Dosage: 600 DAILY
  3. SEROQUEL [Concomitant]
     Dosage: 1200 HS
  4. AMATINE [Concomitant]
     Dosage: 5 MG, HALF A TABLET TID
  5. ZYPREXA [Concomitant]
     Dosage: 5 HS
  6. COGENTIN [Concomitant]
  7. NITOMAN [Concomitant]
     Dosage: 25 UNK, TID

REACTIONS (3)
  - ANAEMIA [None]
  - NEUTROPENIA [None]
  - PANCYTOPENIA [None]
